FAERS Safety Report 8582427-X (Version None)
Quarter: 2012Q3

REPORT INFORMATION
  Report Type: 
  Country: None (occurrence: None)
  Receive Date: 20120809
  Receipt Date: 20120724
  Transmission Date: 20120928
  Serious: Yes (Other)
  Sender: FDA-Public Use
  Company Number: AU-GLAXOSMITHKLINE-B0820417A

PATIENT
  Sex: Male
  Weight: 180 kg

DRUGS (4)
  1. DUTASTERIDE/TAMSULOSIN HYDROCHLORIDE [Suspect]
     Indication: BENIGN PROSTATIC HYPERPLASIA
     Route: 065
     Dates: start: 20120608
  2. ACETAMINOPHEN [Concomitant]
     Indication: OSTEOARTHRITIS
  3. LERCANIDIPINE [Concomitant]
     Indication: HYPERTENSION
  4. ANTI HYPERTENSIVE [Concomitant]

REACTIONS (1)
  - GASTROOESOPHAGEAL REFLUX DISEASE [None]
